FAERS Safety Report 4757521-1 (Version None)
Quarter: 2005Q3

REPORT INFORMATION
  Report Type: 
  Country: None (occurrence: None)
  Receive Date: 20050831
  Receipt Date: 20050804
  Transmission Date: 20060218
  Serious: Yes (Hospitalization)
  Sender: FDA-Public Use
  Company Number: US-MERCK-0508USA01288

PATIENT
  Age: 59 Year
  Sex: Male

DRUGS (4)
  1. VIOXX [Suspect]
     Indication: ARTHRALGIA
     Route: 048
     Dates: start: 20000301
  2. VIOXX [Suspect]
     Indication: BACK PAIN
     Route: 048
     Dates: start: 20000301
  3. ALLOPURINOL MSD [Concomitant]
     Route: 065
  4. ASPIRIN [Concomitant]
     Route: 065

REACTIONS (50)
  - ACROCHORDON [None]
  - ADVERSE EVENT [None]
  - ALANINE AMINOTRANSFERASE INCREASED [None]
  - ANXIETY [None]
  - ARTHRALGIA [None]
  - ASPARTATE AMINOTRANSFERASE INCREASED [None]
  - ASTHENIA [None]
  - BLOOD BILIRUBIN INCREASED [None]
  - BLOOD CHOLESTEROL INCREASED [None]
  - BLOOD CREATINE PHOSPHOKINASE INCREASED [None]
  - BLOOD GLUCOSE INCREASED [None]
  - BRONCHITIS [None]
  - CARDIOVASCULAR DISORDER [None]
  - CEREBROVASCULAR ACCIDENT [None]
  - CHRONIC FATIGUE SYNDROME [None]
  - COUGH [None]
  - CYST [None]
  - DIASTOLIC DYSFUNCTION [None]
  - DIFFICULTY IN WALKING [None]
  - DRUG WITHDRAWAL SYNDROME [None]
  - DYSPNOEA EXERTIONAL [None]
  - EPIDERMAL NAEVUS [None]
  - FATIGUE [None]
  - HEPATIC ENZYME INCREASED [None]
  - HERPES SIMPLEX [None]
  - HYPERHIDROSIS [None]
  - HYPERLIPIDAEMIA [None]
  - HYPERPLASIA [None]
  - HYPERTENSION [None]
  - IMPAIRED WORK ABILITY [None]
  - INSOMNIA [None]
  - LYMPHADENOPATHY [None]
  - MITRAL VALVE INCOMPETENCE [None]
  - MYALGIA [None]
  - NASAL CONGESTION [None]
  - NEOPLASM PROSTATE [None]
  - PAPILLOMA [None]
  - PARAESTHESIA [None]
  - PHARYNGITIS [None]
  - PROSTATIC SPECIFIC ANTIGEN INCREASED [None]
  - PROSTATITIS [None]
  - RESTLESSNESS [None]
  - SENSATION OF HEAVINESS [None]
  - SINUSITIS [None]
  - SKIN DEGENERATIVE DISORDER [None]
  - SLEEP DISORDER [None]
  - SNORING [None]
  - TRANSIENT ISCHAEMIC ATTACK [None]
  - TRICUSPID VALVE INCOMPETENCE [None]
  - UPPER RESPIRATORY TRACT INFECTION [None]
